FAERS Safety Report 7030231-6 (Version None)
Quarter: 2010Q4

REPORT INFORMATION
  Report Type: 
  Country: None (occurrence: None)
  Receive Date: 20101006
  Receipt Date: 20100923
  Transmission Date: 20110411
  Serious: Yes (Hospitalization)
  Sender: FDA-Public Use
  Company Number: US-ELI_LILLY_AND_COMPANY-US201009005058

PATIENT
  Sex: Female

DRUGS (10)
  1. FORTEO [Suspect]
     Indication: OSTEOPOROSIS
     Dosage: 20 UG, DAILY (1/D)
  2. SIMVASTATIN [Concomitant]
  3. CALCIUM [Concomitant]
  4. VITAMIN D [Concomitant]
  5. LYRICA [Concomitant]
  6. HYDROCODONE [Concomitant]
  7. PRILOSEC [Concomitant]
  8. PAXIL [Concomitant]
  9. NASACORT [Concomitant]
  10. OXYGEN [Concomitant]
     Dosage: 2 LITERS, CONSTANT

REACTIONS (5)
  - CHRONIC OBSTRUCTIVE PULMONARY DISEASE [None]
  - MALAISE [None]
  - PAIN [None]
  - POLLAKIURIA [None]
  - SPEECH DISORDER [None]
